FAERS Safety Report 14769205 (Version 3)
Quarter: 2018Q3

REPORT INFORMATION
  Report Type: Spontaneous
  Country: US (occurrence: US)
  Receive Date: 20180417
  Receipt Date: 20180817
  Transmission Date: 20181010
  Serious: No
  Sender: FDA-Public Use
  Company Number: PHHY2018US067460

PATIENT
  Sex: Female
  Weight: 65.77 kg

DRUGS (2)
  1. ZOFRAN [Suspect]
     Active Substance: ONDANSETRON HYDROCHLORIDE
     Indication: VOMITING IN PREGNANCY
     Dosage: 01 DF, Q4H
     Route: 048
     Dates: start: 201004, end: 201005
  2. ONDANSETRON [Suspect]
     Active Substance: ONDANSETRON
     Indication: VOMITING IN PREGNANCY
     Dosage: 01 DF, Q4H
     Route: 048
     Dates: start: 201004, end: 201010

REACTIONS (6)
  - Injury [Unknown]
  - Ear pain [Unknown]
  - Maternal exposure during pregnancy [Unknown]
  - Product use in unapproved indication [Unknown]
  - Urinary tract infection [Unknown]
  - Asthenia [Unknown]
